FAERS Safety Report 13557086 (Version 1)
Quarter: 2017Q2

REPORT INFORMATION
  Report Type: Spontaneous
  Country: US (occurrence: US)
  Receive Date: 20170518
  Receipt Date: 20170518
  Transmission Date: 20170830
  Serious: Yes (Life-Threatening, Other)
  Sender: FDA-Public Use
  Company Number: US-GLENMARK PHARMACEUTICALS-2017GMK027501

PATIENT
  Age: 74 Year
  Sex: Male
  Weight: 76 kg

DRUGS (7)
  1. ZICONOTIDE [Concomitant]
     Active Substance: ZICONOTIDE
     Dosage: 0.6 ?G, UNK (PER HOUR)
     Route: 037
  2. METOPROLOL. [Suspect]
     Active Substance: METOPROLOL
     Indication: PRODUCT USED FOR UNKNOWN INDICATION
     Dosage: UNK, OD
     Route: 065
  3. FENTANYL. [Suspect]
     Active Substance: FENTANYL
     Indication: GENERAL ANAESTHESIA
     Dosage: 100 ?G, UNK
     Route: 042
  4. SUCCINYLCHOLINE [Suspect]
     Active Substance: SUCCINYLCHOLINE
     Indication: GENERAL ANAESTHESIA
     Dosage: 120 MG, UNK
     Route: 042
  5. PROPOFOL. [Suspect]
     Active Substance: PROPOFOL
     Indication: GENERAL ANAESTHESIA
     Dosage: 200 MG, UNK (DIVIDED DOSES)
     Route: 042
  6. ZICONOTIDE [Concomitant]
     Active Substance: ZICONOTIDE
     Indication: BACK PAIN
     Dosage: UNK ?G, UNK
     Route: 037
  7. LIDOCAINE. [Suspect]
     Active Substance: LIDOCAINE
     Indication: GENERAL ANAESTHESIA
     Dosage: 60 MG, UNK
     Route: 042

REACTIONS (1)
  - Vasoplegia syndrome [Unknown]
